FAERS Safety Report 7664423-X (Version None)
Quarter: 2011Q3

REPORT INFORMATION
  Report Type: 
  Country: None (occurrence: None)
  Receive Date: 20110806
  Receipt Date: 20110217
  Transmission Date: 20111222
  Serious: No
  Sender: FDA-Public Use
  Company Number: US-ABBOTT-11P-163-0705915-00

PATIENT
  Sex: Male

DRUGS (4)
  1. ALLOPURINOL [Suspect]
     Indication: PRODUCT USED FOR UNKNOWN INDICATION
     Dates: start: 20101201
  2. SIMVASTATIN [Suspect]
     Indication: PRODUCT USED FOR UNKNOWN INDICATION
     Dates: start: 20101201
  3. NIASPAN [Suspect]
     Indication: PRODUCT USED FOR UNKNOWN INDICATION
     Dates: start: 20100101
  4. NIASPAN [Suspect]
     Dates: start: 20080101

REACTIONS (2)
  - URTICARIA [None]
  - RASH PRURITIC [None]
